FAERS Safety Report 17794355 (Version 1)
Quarter: 2020Q2

REPORT INFORMATION
  Report Type: Report from Study
  Country: BE (occurrence: BE)
  Receive Date: 20200515
  Receipt Date: 20200515
  Transmission Date: 20200714
  Serious: Yes (Other)
  Sender: FDA-Public Use
  Company Number: BE-MYLANLABS-2020M1047649

PATIENT
  Age: 74 Year
  Sex: Male
  Weight: 77 kg

DRUGS (16)
  1. ALLOPURINOL. [Concomitant]
     Active Substance: ALLOPURINOL
     Indication: GOUT
     Dosage: UNK UNK, QD
     Dates: start: 2016
  2. PANTOMED                           /01263204/ [Concomitant]
     Active Substance: PANTOPRAZOLE SODIUM
     Indication: RADIATION OESOPHAGITIS
     Dosage: 0.5 DAY
     Dates: start: 20190603
  3. DEXAMETHASONE. [Concomitant]
     Active Substance: DEXAMETHASONE
     Dosage: 12 MILLIGRAM
     Dates: start: 20200302, end: 20200302
  4. BEVACIZUMAB. [Suspect]
     Active Substance: BEVACIZUMAB
     Indication: NON-SMALL CELL LUNG CANCER
     Dosage: UNK
     Route: 065
  5. FLUOROMETHOLONE. [Concomitant]
     Active Substance: FLUOROMETHOLONE
     Dosage: UNK UNK, QD
     Dates: start: 20160320
  6. ETOPOSIDE. [Suspect]
     Active Substance: ETOPOSIDE
     Indication: NON-SMALL CELL LUNG CANCER
     Dosage: UNK
     Route: 065
  7. AVELOX [Concomitant]
     Active Substance: MOXIFLOXACIN HYDROCHLORIDE
     Indication: LEUKOPENIA
     Dosage: UNK UNK, QD
     Dates: start: 20200220
  8. DIFLUCAN [Concomitant]
     Active Substance: FLUCONAZOLE
     Indication: RADIATION OESOPHAGITIS
     Dosage: UNK UNK, QD
     Dates: start: 20190603
  9. PACLITAXEL. [Suspect]
     Active Substance: PACLITAXEL
     Indication: NON-SMALL CELL LUNG CANCER
     Dosage: UNK
     Route: 065
  10. PERINDOPRIL [Concomitant]
     Active Substance: PERINDOPRIL
     Indication: HYPERTENSION
     Dosage: UNK UNK, QD
     Dates: start: 2016
  11. LONQUEX [Concomitant]
     Active Substance: LIPEGFILGRASTIM
     Dosage: UNK UNK, QD
     Dates: start: 20200402, end: 20200402
  12. ATEZOLIZUMAB. [Suspect]
     Active Substance: ATEZOLIZUMAB
     Indication: NON-SMALL CELL LUNG CANCER
     Dosage: 1200 MILLIGRAM, 3XW
     Route: 041
     Dates: start: 20200302
  13. ASAFLOW [Concomitant]
     Active Substance: ASPIRIN
     Dosage: UNK UNK, QD
     Dates: start: 2016
  14. CARBOPLATIN. [Suspect]
     Active Substance: CARBOPLATIN
     Indication: NON-SMALL CELL LUNG CANCER
     Dosage: UNK
     Route: 065
  15. SYNGEL [Concomitant]
     Indication: RADIATION OESOPHAGITIS
     Dosage: 0.33 DAY
     Dates: start: 20190603
  16. DAFALGAN [Concomitant]
     Active Substance: ACETAMINOPHEN
     Indication: RADIATION OESOPHAGITIS
     Dosage: 0.25 DAY
     Dates: start: 20190603

REACTIONS (2)
  - Neutropenia [Recovered/Resolved]
  - Dermatitis [Recovering/Resolving]

NARRATIVE: CASE EVENT DATE: 20200313
